FAERS Safety Report 6441186-7 (Version None)
Quarter: 2009Q4

REPORT INFORMATION
  Report Type: 
  Country: None (occurrence: None)
  Receive Date: 20091116
  Receipt Date: 20091106
  Transmission Date: 20100525
  Serious: Yes (Other)
  Sender: FDA-Public Use
  Company Number: US-ELI_LILLY_AND_COMPANY-US200909005119

PATIENT
  Sex: Male

DRUGS (11)
  1. HUMALOG [Suspect]
     Indication: TYPE 1 DIABETES MELLITUS
     Dosage: UNK, AS NEEDED
  2. BACTRIM [Concomitant]
  3. RAPAMUNE [Concomitant]
  4. PROGRAF [Concomitant]
  5. PREDNISONE [Concomitant]
  6. PROTONIX [Concomitant]
  7. LABETALOL HCL [Concomitant]
  8. CARTIA XT [Concomitant]
  9. SYNTHROID [Concomitant]
  10. CALCIUM [Concomitant]
     Dosage: 600 MG, 3/D
  11. LANTUS [Concomitant]
     Dosage: 8 U, EACH MORNING

REACTIONS (4)
  - BLINDNESS [None]
  - COMPLICATIONS OF TRANSPLANTED PANCREAS [None]
  - DIABETIC RETINOPATHY [None]
  - RENAL FAILURE CHRONIC [None]
